FAERS Safety Report 17020476 (Version 3)
Quarter: 2020Q2

REPORT INFORMATION
  Report Type: Report from Study
  Country: DE (occurrence: DE)
  Receive Date: 20191112
  Receipt Date: 20200401
  Transmission Date: 20200713
  Serious: Yes (Other)
  Sender: FDA-Public Use
  Company Number: NVSC2019DE030811

PATIENT
  Sex: Male
  Weight: 70 kg

DRUGS (10)
  1. COSENTYX [Suspect]
     Active Substance: SECUKINUMAB
     Dosage: 150 MG, PER APPLICATION (AUTOINJECTOR)
     Route: 065
     Dates: start: 20200109
  2. COSENTYX [Suspect]
     Active Substance: SECUKINUMAB
     Dosage: 150 MG, PER APPLICATION (PRE-FILLED SYRINGE)
     Route: 065
     Dates: start: 20190910
  3. COSENTYX [Suspect]
     Active Substance: SECUKINUMAB
     Dosage: 150 MG, PER APPLICATION (AUTOINJECTOR)
     Route: 065
     Dates: start: 20191210
  4. COSENTYX [Suspect]
     Active Substance: SECUKINUMAB
     Dosage: 150 MG, PER APPLICATION (PRE-FILLED SYRINGE)
     Route: 065
     Dates: start: 20190820
  5. IBUPROFEN. [Concomitant]
     Active Substance: IBUPROFEN
     Indication: HEADACHE
     Dosage: 400 MG, PRN
     Route: 048
     Dates: start: 20190904, end: 201911
  6. COSENTYX [Suspect]
     Active Substance: SECUKINUMAB
     Dosage: 150 MG, PER APPLICATION (PRE-FILLED SYRINGE)
     Route: 065
     Dates: start: 20190827
  7. COSENTYX [Suspect]
     Active Substance: SECUKINUMAB
     Dosage: 150 MG, PER APPLICATION (PRE-FILLED SYRINGE)
     Route: 065
     Dates: start: 20191010
  8. COSENTYX [Suspect]
     Active Substance: SECUKINUMAB
     Indication: PSORIATIC ARTHROPATHY
     Dosage: 150 MG, PER APPLICATION (PRE-FILLED SYRINGE)
     Route: 065
     Dates: start: 20190812
  9. COSENTYX [Suspect]
     Active Substance: SECUKINUMAB
     Dosage: 150 MG, PER APPLICATION (PRE-FILLED SYRINGE)
     Route: 065
     Dates: start: 20190903
  10. COSENTYX [Suspect]
     Active Substance: SECUKINUMAB
     Dosage: 150 MG, PER APPLICATION (AUTOINJECTOR)
     Route: 065
     Dates: start: 20191110

REACTIONS (2)
  - Respiratory tract infection [Recovered/Resolved]
  - Psoriasis [Recovered/Resolved]

NARRATIVE: CASE EVENT DATE: 20191014
